FAERS Safety Report 25167943 (Version 2)
Quarter: 2025Q2

REPORT INFORMATION
  Report Type: Spontaneous
  Country: DE (occurrence: DE)
  Receive Date: 20250407
  Receipt Date: 20250415
  Transmission Date: 20250716
  Serious: Yes (Death)
  Sender: BAYER
  Company Number: DE-BAYER-2025A044846

PATIENT
  Age: 74 Year
  Sex: Male
  Weight: 78 kg

DRUGS (2)
  1. NUBEQA [Suspect]
     Active Substance: DAROLUTAMIDE
     Indication: Hormone-dependent prostate cancer
     Dosage: 600 MG, BID
     Dates: start: 20241219
  2. DOCETAXEL [Suspect]
     Active Substance: DOCETAXEL

REACTIONS (1)
  - Sudden death [Fatal]

NARRATIVE: CASE EVENT DATE: 20250326
